FAERS Safety Report 8891881 (Version 2)
Quarter: 2013Q1

REPORT INFORMATION
  Report Type: Spontaneous
  Country: US (occurrence: None)
  Receive Date: 20121031
  Receipt Date: 20121120
  Transmission Date: 20140127
  Serious: Yes (Hospitalization)
  Sender: FDA-Public Use
  Company Number: AUR-APL-2012-04572

PATIENT
  Age: 21 Year
  Sex: Female

DRUGS (1)
  1. SERTRALINE (SERTRALINE) (SERTRALINE) [Suspect]
     Indication: ANXIETY
     Route: 048
     Dates: start: 201210

REACTIONS (7)
  - Thinking abnormal [None]
  - Anxiety [None]
  - Agitation [None]
  - Headache [None]
  - Heart rate increased [None]
  - Decreased appetite [None]
  - Nausea [None]
